FAERS Safety Report 9036143 (Version 2)
Quarter: 2013Q1

REPORT INFORMATION
  Report Type: Spontaneous
  Country: GB (occurrence: None)
  Receive Date: 20130116
  Receipt Date: 20130125
  Transmission Date: 20140127
  Serious: Yes (Other)
  Sender: FDA-Public Use
  Company Number: GER/UKI/13/0027409

PATIENT
  Age: 53 Year
  Sex: Female

DRUGS (1)
  1. CETIRIZINE (CETIRIZINE) [Suspect]
     Indication: URTICARIA
     Route: 048
     Dates: start: 20121017, end: 20121019

REACTIONS (3)
  - Joint swelling [None]
  - Abdominal distension [None]
  - Local swelling [None]
